FAERS Safety Report 14942541 (Version 1)
Quarter: 2018Q2

REPORT INFORMATION
  Report Type: Spontaneous
  Country: NL (occurrence: NL)
  Receive Date: 20180528
  Receipt Date: 20180528
  Transmission Date: 20180711
  Serious: Yes (Hospitalization, Other)
  Sender: FDA-Public Use
  Company Number: NL-AUROBINDO-AUR-APL-2018-027371

PATIENT
  Age: 52 Year
  Sex: Male

DRUGS (1)
  1. PARACETAMOL 500 MG, DISPERSIBLE TABLETS [Suspect]
     Active Substance: ACETAMINOPHEN
     Indication: SUICIDE ATTEMPT
     Dosage: 50 TABLETS OF 500 MG PARACETAMOL ; IN TOTAL
     Route: 048

REACTIONS (12)
  - Tachycardia [None]
  - Toxicity to various agents [Recovered/Resolved]
  - Blood pressure increased [None]
  - Chemical poisoning [None]
  - Suicide attempt [None]
  - Pyrexia [None]
  - Intentional overdose [Recovered/Resolved]
  - Respiratory failure [None]
  - Pneumothorax [None]
  - Skin swelling [None]
  - Infectious pleural effusion [None]
  - Muscle abscess [None]
